FAERS Safety Report 4888335-X (Version None)
Quarter: 2006Q1

REPORT INFORMATION
  Report Type: 
  Country: None (occurrence: None)
  Receive Date: 20060123
  Receipt Date: 20060117
  Transmission Date: 20060701
  Serious: Yes (Hospitalization)
  Sender: FDA-Public Use
  Company Number: 430867

PATIENT
  Age: 63 Year
  Sex: Female

DRUGS (3)
  1. ARTIST [Suspect]
     Indication: HYPERTENSION
     Dosage: 10MG PER DAY
     Route: 048
     Dates: start: 20050719, end: 20050913
  2. AZELNIDIPINE [Suspect]
     Indication: HYPERTENSION
     Dosage: 16MG PER DAY
     Route: 048
     Dates: start: 20050705, end: 20050913
  3. OLMETEC [Suspect]
     Indication: HYPERTENSION
     Route: 048
     Dates: start: 20050705, end: 20050913

REACTIONS (4)
  - HEPATITIS [None]
  - LIVER DISORDER [None]
  - SOMNOLENCE [None]
  - TRANSAMINASES INCREASED [None]
